FAERS Safety Report 8909251 (Version 2)
Quarter: 2013Q1

REPORT INFORMATION
  Report Type: Spontaneous
  Country: US (occurrence: None)
  Receive Date: 20121107
  Receipt Date: 20130104
  Transmission Date: 20140127
  Serious: Yes (Hospitalization, Other)
  Sender: FDA-Public Use
  Company Number: 2012SP003395

PATIENT
  Age: 68 Year
  Sex: Male
  Weight: 77 kg

DRUGS (17)
  1. FLUOROURACIL [Suspect]
     Indication: OESOPHAGEAL ADENOCARCINOMA
     Route: 042
     Dates: start: 20120507
  2. FLUOROURACIL [Suspect]
     Indication: OESOPHAGEAL ADENOCARCINOMA
     Route: 042
     Dates: start: 20120507
  3. FLUOROURACIL [Suspect]
     Indication: ADENOCARCINOMA GASTRIC
     Route: 042
     Dates: start: 20120507
  4. OXALIPLATIN [Suspect]
     Indication: OESOPHAGEAL ADENOCARCINOMA
     Route: 042
     Dates: start: 20120507
  5. OXALIPLATIN [Suspect]
     Indication: OESOPHAGEAL ADENOCARCINOMA
     Route: 042
     Dates: start: 20120507
  6. OXALIPLATIN [Suspect]
     Indication: ADENOCARCINOMA GASTRIC
     Route: 042
     Dates: start: 20120507
  7. LEUCOVORIN /00566701/ [Suspect]
     Indication: OESOPHAGEAL ADENOCARCINOMA
     Route: 042
     Dates: start: 20120507
  8. BLINDED THERAPY [Suspect]
     Indication: OESOPHAGEAL ADENOCARCINOMA
     Route: 042
     Dates: start: 20120507
  9. FLUTICASONE [Concomitant]
  10. SALMETEROL [Concomitant]
  11. SPIRIVA [Concomitant]
  12. ASA [Concomitant]
  13. CRESTOR [Concomitant]
  14. NEXIUM /01479303/ [Concomitant]
  15. AMBIEN [Concomitant]
  16. PROCARDIA /00340701/ [Concomitant]
  17. K-PHOS [Concomitant]

REACTIONS (3)
  - Pneumonia [None]
  - Disease progression [None]
  - Oesophageal adenocarcinoma [None]
